FAERS Safety Report 5157557-5 (Version None)
Quarter: 2006Q4

REPORT INFORMATION
  Report Type: 
  Country: None (occurrence: None)
  Receive Date: 20061127
  Receipt Date: 20061117
  Transmission Date: 20070319
  Serious: Yes (Other)
  Sender: FDA-Public Use
  Company Number: IT-GLAXOSMITHKLINE-B0447819A

PATIENT
  Age: 46 Year
  Sex: Female

DRUGS (1)
  1. SUMATRIPTAN SUCCINATE [Suspect]
     Dosage: 20MG PER DAY
     Route: 045
     Dates: start: 20050725, end: 20050725

REACTIONS (1)
  - ANOSMIA [None]
